FAERS Safety Report 17291619 (Version 1)
Quarter: 2020Q1

REPORT INFORMATION
  Report Type: Spontaneous
  Country: DE (occurrence: DE)
  Receive Date: 20200121
  Receipt Date: 20200121
  Transmission Date: 20200409
  Serious: Yes (Other)
  Sender: FDA-Public Use
  Company Number: DE-BAYER-2020-002243

PATIENT
  Age: 50 Year
  Sex: Female
  Weight: 79 kg

DRUGS (1)
  1. CIPROFLOXACIN MONOHYDROCHLORIDE [Suspect]
     Active Substance: CIPROFLOXACIN
     Dosage: 500 MG, BID
     Dates: start: 20170914, end: 20170916

REACTIONS (7)
  - Myalgia [None]
  - Neuropathy peripheral [None]
  - Dizziness [None]
  - Anxiety [None]
  - Gait disturbance [None]
  - Fatigue [None]
  - Feeling abnormal [None]

NARRATIVE: CASE EVENT DATE: 20170916
